FAERS Safety Report 20375496 (Version 3)
Quarter: 2022Q1

REPORT INFORMATION
  Report Type: Spontaneous
  Country: JP (occurrence: JP)
  Receive Date: 20220125
  Receipt Date: 20220215
  Transmission Date: 20220423
  Serious: Yes (Death, Life-Threatening, Other)
  Sender: FDA-Public Use
  Company Number: JP-JAZZ-2022-JP-000154

PATIENT
  Age: 47 Year
  Sex: Male
  Weight: 69.1 kg

DRUGS (3)
  1. DEFITELIO [Suspect]
     Active Substance: DEFIBROTIDE SODIUM
     Indication: Venoocclusive liver disease
     Dosage: 25 MILLIGRAM/KILOGRAM, QD
     Route: 042
     Dates: start: 20211213, end: 20211229
  2. DEFITELIO [Suspect]
     Active Substance: DEFIBROTIDE SODIUM
     Dosage: 25 MILLIGRAM/KILOGRAM, QD
     Route: 042
     Dates: start: 20211231, end: 20220102
  3. ANTITHROMBIN III HUMAN [Concomitant]
     Active Substance: ANTITHROMBIN III HUMAN
     Indication: Product used for unknown indication
     Dosage: UNK
     Dates: start: 20211215, end: 20220105

REACTIONS (4)
  - Hypotension [Fatal]
  - Post procedural haemorrhage [Recovering/Resolving]
  - Venoocclusive liver disease [Fatal]
  - Off label use [Unknown]

NARRATIVE: CASE EVENT DATE: 20211213
